FAERS Safety Report 18704379 (Version 1)
Quarter: 2021Q1

REPORT INFORMATION
  Report Type: Spontaneous
  Country: US (occurrence: US)
  Receive Date: 20210105
  Receipt Date: 20210105
  Transmission Date: 20210419
  Serious: Yes (Other)
  Sender: FDA-Public Use
  Company Number: US-BAUSCH-BL-2020-038544

PATIENT
  Age: 52 Year
  Sex: Male
  Weight: 88.53 kg

DRUGS (2)
  1. ALREX [Suspect]
     Active Substance: LOTEPREDNOL ETABONATE
     Indication: PRODUCT USE IN UNAPPROVED INDICATION
     Dosage: EVERY OTHER DAY (ONE DROP IN EACH EYE)
     Route: 047
     Dates: start: 202012
  2. ALREX [Suspect]
     Active Substance: LOTEPREDNOL ETABONATE
     Indication: ULCERATIVE KERATITIS
     Dosage: EVERY OTHER DAY (ONE DROP IN EACH EYE) (STARTED OVER 10 YEARS AGO)
     Route: 047

REACTIONS (5)
  - Drug ineffective for unapproved indication [Unknown]
  - Ulcerative keratitis [Not Recovered/Not Resolved]
  - Product use in unapproved indication [Unknown]
  - Product use issue [Unknown]
  - Disease recurrence [Not Recovered/Not Resolved]

NARRATIVE: CASE EVENT DATE: 2020
